FAERS Safety Report 8808153 (Version 1)
Quarter: 2012Q4

REPORT INFORMATION
  Report Type: 
  Country: US (occurrence: US)
  Receive Date: 20120925
  Receipt Date: 20120925
  Transmission Date: 20130627
  Serious: No
  Sender: FDA-Public Use
  Company Number: US-B.I. PHARMACEUTICALS,INC./RIDGEFIELD-2011-BP-25352BP

PATIENT
  Age: 81 Year
  Sex: Female
  Weight: 45.4 kg

DRUGS (5)
  1. ATROVENT INHALATION AEROSOL HFA [Suspect]
     Route: 055
     Dates: end: 2011
  2. BROVANA [Suspect]
     Route: 055
     Dates: start: 20110713
  3. MULTIVITAMINS WITH MINERALS [Concomitant]
  4. ACETYLSALICYLIC ACID [Concomitant]
  5. CALCIUM [Concomitant]

REACTIONS (2)
  - Oropharyngeal pain [Recovered/Resolved]
  - Candidiasis [Not Recovered/Not Resolved]
